FAERS Safety Report 22660133 (Version 1)
Quarter: 2023Q2

REPORT INFORMATION
  Report Type: Report from Study
  Country: BR (occurrence: BR)
  Receive Date: 20230630
  Receipt Date: 20230630
  Transmission Date: 20230722
  Serious: Yes (Other)
  Sender: FDA-Public Use
  Company Number: BR-002147023-NVSC2023BR144614

PATIENT
  Sex: Female
  Weight: 63 kg

DRUGS (6)
  1. ENTRESTO [Suspect]
     Active Substance: SACUBITRIL\VALSARTAN
     Indication: Cardiomegaly
     Dosage: 1 DOSAGE FORM, Q12H (START DATE: 5 YEARS AGO)
     Route: 048
  2. ENTRESTO [Suspect]
     Active Substance: SACUBITRIL\VALSARTAN
     Indication: Dyspnoea
  3. AMLODIPINE [Concomitant]
     Active Substance: AMLODIPINE BESYLATE
     Indication: Cardiomegaly
     Dosage: 1 DOSAGE FORM, Q12H (START DATE: 5 YEARS AGO AND END DATE: A MONTH AGO)
     Route: 048
  4. AMLODIPINE [Concomitant]
     Active Substance: AMLODIPINE BESYLATE
     Indication: Dyspnoea
  5. SPIRONOLACTONE [Concomitant]
     Active Substance: SPIRONOLACTONE
     Indication: Cardiomegaly
     Dosage: 1 DOSAGE FORM, QD (AFTER LUNCH) (START DATE: 5 YEARS AGO AND END DATE: A MONTH AGO)
     Route: 048
  6. SPIRONOLACTONE [Concomitant]
     Active Substance: SPIRONOLACTONE
     Indication: Dyspnoea

REACTIONS (5)
  - Eye disorder [Not Recovered/Not Resolved]
  - Visual impairment [Not Recovered/Not Resolved]
  - Fall [Recovering/Resolving]
  - Femur fracture [Recovering/Resolving]
  - Product use in unapproved indication [Not Recovered/Not Resolved]

NARRATIVE: CASE EVENT DATE: 20220101
